FAERS Safety Report 8600557-0 (Version None)
Quarter: 2012Q3

REPORT INFORMATION
  Report Type: 
  Country: None (occurrence: None)
  Receive Date: 20120817
  Receipt Date: 20120809
  Transmission Date: 20120928
  Serious: Yes (Hospitalization)
  Sender: FDA-Public Use
  Company Number: US-BAYER-2012-082394

PATIENT
  Age: 44 Year
  Sex: Female

DRUGS (7)
  1. REGLAN [Concomitant]
     Indication: NAUSEA
  2. ZOCOR [Concomitant]
     Indication: CEREBRAL HAEMORRHAGE
  3. YAZ [Suspect]
  4. KEPPRA [Concomitant]
     Indication: CEREBRAL HAEMORRHAGE
  5. NIMOTOP [Concomitant]
     Indication: CEREBRAL HAEMORRHAGE
  6. ALEVE [Concomitant]
     Dosage: UNK
     Route: 048
     Dates: start: 20100627
  7. ZOFRAN [Concomitant]
     Indication: NAUSEA

REACTIONS (1)
  - INTRACRANIAL VENOUS SINUS THROMBOSIS [None]
